FAERS Safety Report 6647173-8 (Version None)
Quarter: 2010Q1

REPORT INFORMATION
  Report Type: 
  Country: None (occurrence: None)
  Receive Date: 20100323
  Receipt Date: 20100311
  Transmission Date: 20100710
  Serious: Yes (Other)
  Sender: FDA-Public Use
  Company Number: US-PFIZER INC-2010032343

PATIENT
  Age: 95 Year
  Sex: Male

DRUGS (3)
  1. LINEZOLID [Suspect]
     Indication: STAPHYLOCOCCAL INFECTION
     Dosage: 600 MG, 2X/DAY
     Route: 042
  2. COLCHICINE [Concomitant]
     Indication: GOUT
  3. ALLOPURINOL [Concomitant]
     Indication: GOUT

REACTIONS (3)
  - BACTERAEMIA [None]
  - DRUG INEFFECTIVE [None]
  - PATHOGEN RESISTANCE [None]
